FAERS Safety Report 22596237 (Version 1)
Quarter: 2023Q2

REPORT INFORMATION
  Report Type: Spontaneous
  Country: US (occurrence: US)
  Receive Date: 20230613
  Receipt Date: 20230613
  Transmission Date: 20230722
  Serious: No
  Sender: FDA-Public Use
  Company Number: US-RIGEL Pharmaceuticals, INC-2022FOS000891

PATIENT
  Sex: Female
  Weight: 73.107 kg

DRUGS (2)
  1. TAVALISSE [Suspect]
     Active Substance: FOSTAMATINIB
     Indication: Immune thrombocytopenia
     Dosage: 100 MG, BID
     Route: 048
     Dates: end: 20221212
  2. TAVALISSE [Suspect]
     Active Substance: FOSTAMATINIB
     Indication: Breast cancer female
     Dosage: 150 MG, BID
     Route: 048

REACTIONS (4)
  - Colitis [Unknown]
  - Product dose omission issue [Unknown]
  - Fatigue [Unknown]
  - Diarrhoea [Unknown]
